FAERS Safety Report 4807623-6 (Version None)
Quarter: 2005Q4

REPORT INFORMATION
  Report Type: 
  Country: None (occurrence: None)
  Receive Date: 20051020
  Receipt Date: 20051011
  Transmission Date: 20060501
  Serious: Yes (Hospitalization)
  Sender: FDA-Public Use
  Company Number: 440007M05USA

PATIENT
  Age: 77 Year
  Sex: Male
  Weight: 45.8133 kg

DRUGS (1)
  1. SEROSTIM [Suspect]
     Indication: CACHEXIA
     Dosage: 6 MG, 1 IN 1 DAYS, SUBCUTANOUES
     Route: 058

REACTIONS (2)
  - DEEP VEIN THROMBOSIS [None]
  - PAIN IN EXTREMITY [None]
